FAERS Safety Report 15227453 (Version 1)
Quarter: 2018Q3

REPORT INFORMATION
  Report Type: Report from Study
  Country: None (occurrence: BE)
  Receive Date: 20180801
  Receipt Date: 20180801
  Transmission Date: 20181010
  Serious: Yes (Other)
  Sender: FDA-Public Use
  Company Number: BE-ABBVIE-18P-013-2436025-00

PATIENT
  Age: 69 Year
  Sex: Male

DRUGS (7)
  1. EMCONCOR [Concomitant]
     Active Substance: BISOPROLOL FUMARATE
     Indication: BUNDLE BRANCH BLOCK LEFT
     Route: 048
     Dates: start: 20040914
  2. GLECAPREVIR/PIBRENTASVIR [Suspect]
     Active Substance: GLECAPREVIR\PIBRENTASVIR
     Indication: CHRONIC HEPATITIS C
     Dosage: 8 WEEK REGIMEN
     Route: 048
     Dates: start: 20180130, end: 20180326
  3. INUVAIR [Concomitant]
     Active Substance: BECLOMETHASONE DIPROPIONATE\FORMOTEROL FUMARATE
     Indication: ASTHMA
     Dosage: DOSE:  NEXTHALER 100?6
     Route: 055
     Dates: start: 2017
  4. SEDINAL PLUS [Concomitant]
     Indication: NERVOUSNESS
     Route: 048
     Dates: start: 2017
  5. REDOMEX [Concomitant]
     Active Substance: AMITRIPTYLINE HYDROCHLORIDE
     Indication: DEPRESSION
     Route: 048
     Dates: start: 2017
  6. SULPIRIDE [Concomitant]
     Active Substance: SULPIRIDE
     Indication: DEPRESSION
     Route: 048
     Dates: start: 2014
  7. AERIUS [Concomitant]
     Active Substance: DESLORATADINE
     Indication: ASTHMA
     Route: 048
     Dates: start: 2014

REACTIONS (1)
  - Hepatocellular carcinoma [Not Recovered/Not Resolved]

NARRATIVE: CASE EVENT DATE: 20180626
